FAERS Safety Report 9121468 (Version 1)
Quarter: 2013Q1

REPORT INFORMATION
  Report Type: Spontaneous
  Country: US (occurrence: US)
  Receive Date: 20130227
  Receipt Date: 20130227
  Transmission Date: 20140127
  Serious: Yes (Other)
  Sender: FDA-Public Use
  Company Number: US-RANBAXY-2013US-65460

PATIENT
  Age: 70 Year
  Sex: Male

DRUGS (4)
  1. SIMVASTATIN [Suspect]
     Indication: PRODUCT USED FOR UNKNOWN INDICATION
     Dosage: UNK
     Route: 065
  2. LORAZEPAM [Suspect]
     Indication: SLEEP DISORDER
     Dosage: UNK
     Route: 065
  3. LORAZEPAM [Suspect]
     Indication: SOMATOFORM DISORDER
  4. LORAZEPAM [Suspect]
     Indication: ANXIETY

REACTIONS (3)
  - Cognitive disorder [Recovering/Resolving]
  - Agitation [Recovering/Resolving]
  - Condition aggravated [Recovering/Resolving]
